FAERS Safety Report 6166043-5 (Version None)
Quarter: 2009Q2

REPORT INFORMATION
  Report Type: 
  Country: None (occurrence: None)
  Receive Date: 20090424
  Receipt Date: 20090414
  Transmission Date: 20091009
  Serious: Yes (Hospitalization)
  Sender: FDA-Public Use
  Company Number: US-JNJFOC-20090300853

PATIENT
  Sex: Female
  Weight: 86.64 kg

DRUGS (19)
  1. DOXIL [Suspect]
     Route: 042
  2. DOXIL [Suspect]
     Dosage: CYCLE 3
     Route: 042
  3. DOXIL [Suspect]
     Indication: MULTIPLE MYELOMA
     Dosage: CYCLES 1 AND 2
     Route: 042
  4. VELCADE [Suspect]
     Route: 042
  5. VELCADE [Suspect]
     Dosage: CYCLE 3
     Route: 042
  6. VELCADE [Suspect]
     Indication: MULTIPLE MYELOMA
     Dosage: CYCLES 1 AND 2
     Route: 042
  7. DEXAMETHASOME [Suspect]
     Indication: MULTIPLE MYELOMA
     Route: 048
  8. COLACE [Concomitant]
     Indication: LAXATIVE SUPPORTIVE CARE
     Route: 048
  9. DURAGESIC-100 [Concomitant]
     Indication: PAIN
     Route: 062
  10. LASIX [Concomitant]
     Indication: DIURETIC THERAPY
     Route: 048
  11. DILAUDID [Concomitant]
     Indication: PAIN
     Route: 048
  12. ZOFRAN [Concomitant]
     Indication: NAUSEA
     Dosage: FREQUENCY REPORTED AS Q4O PRN
     Route: 048
  13. PERCOCOT [Concomitant]
     Indication: PAIN
     Dosage: FREQUENCY REPORTED AS Q6O PRN
     Route: 048
  14. PHENERGAN [Concomitant]
     Indication: NAUSEA
     Route: 048
  15. LOVENOX [Concomitant]
     Indication: DEEP VEIN THROMBOSIS
     Route: 058
  16. POTASSIUM CHLORIDE [Concomitant]
     Indication: MINERAL SUPPLEMENTATION
     Route: 048
  17. NEURONTIN [Concomitant]
     Indication: NEUROPATHY PERIPHERAL
     Route: 048
  18. AUGMENTIN '125' [Concomitant]
     Indication: PYREXIA
     Route: 048
  19. MINOCYCLINE HCL [Concomitant]
     Indication: INFECTION
     Route: 048

REACTIONS (2)
  - CELLULITIS [None]
  - MYOSITIS [None]
